FAERS Safety Report 7594699-9 (Version None)
Quarter: 2011Q3

REPORT INFORMATION
  Report Type: 
  Country: None (occurrence: None)
  Receive Date: 20110707
  Receipt Date: 20110629
  Transmission Date: 20111222
  Serious: Yes (Hospitalization)
  Sender: FDA-Public Use
  Company Number: US-ASTELLAS-2011US003496

PATIENT
  Sex: Male
  Weight: 84 kg

DRUGS (1)
  1. ERLOTINIB HYDROCHLORIDE [Suspect]
     Indication: MYELOID LEUKAEMIA
     Dosage: 150 MG, UID/QD
     Route: 048
     Dates: end: 20100901

REACTIONS (5)
  - FEBRILE NEUTROPENIA [None]
  - DISEASE PROGRESSION [None]
  - DIARRHOEA [None]
  - ASTHENIA [None]
  - PANCYTOPENIA [None]
